FAERS Safety Report 23417442 (Version 1)
Quarter: 2024Q1

REPORT INFORMATION
  Report Type: Spontaneous
  Country: US (occurrence: None)
  Receive Date: 20240118
  Receipt Date: 20240118
  Transmission Date: 20240410
  Serious: Yes (Other)
  Sender: FDA-Public Use
  Company Number: 2024A008037

PATIENT
  Age: 41 Year

DRUGS (1)
  1. IMFINZI [Suspect]
     Active Substance: DURVALUMAB

REACTIONS (4)
  - Cholangiocarcinoma [Unknown]
  - Anxiety [Unknown]
  - Personality change [Unknown]
  - Claustrophobia [Unknown]

NARRATIVE: CASE EVENT DATE: 20230801
